FAERS Safety Report 17430663 (Version 1)
Quarter: 2020Q1

REPORT INFORMATION
  Report Type: Spontaneous
  Country: US (occurrence: US)
  Receive Date: 20200203
  Receipt Date: 20200203
  Transmission Date: 20200409
  Serious: No
  Sender: FDA-Public Use
  Company Number: None

PATIENT
  Age: 67 Year
  Sex: Female

DRUGS (4)
  1. IBRANCE [Suspect]
     Active Substance: PALBOCICLIB
     Route: 048
     Dates: start: 201909
  2. ZESTRIL [Concomitant]
     Active Substance: LISINOPRIL
  3. ALDACTONE [Concomitant]
     Active Substance: SPIRONOLACTONE
  4. COREG [Concomitant]
     Active Substance: CARVEDILOL

REACTIONS (2)
  - Bronchitis [None]
  - Cough [None]

NARRATIVE: CASE EVENT DATE: 20200203
